FAERS Safety Report 11010353 (Version 1)
Quarter: 2015Q2

REPORT INFORMATION
  Report Type: Report from Study
  Country: FR (occurrence: FR)
  Receive Date: 20150410
  Receipt Date: 20150410
  Transmission Date: 20150821
  Serious: Yes (Life-Threatening, Hospitalization, Other)
  Sender: FDA-Public Use
  Company Number: FR-INTERMUNE, INC.-201309IM004192

PATIENT
  Age: 65 Year
  Sex: Male
  Weight: 85 kg

DRUGS (33)
  1. SPIRIVA 18 [Concomitant]
     Indication: BRONCHOSPASM
  2. TRIFLUCAN [Concomitant]
     Active Substance: FLUCONAZOLE
     Indication: CANDIDA INFECTION
     Dates: start: 20141117, end: 20141122
  3. COLIMYCINE [Concomitant]
     Active Substance: COLISTIMETHATE SODIUM
     Indication: RESPIRATORY DISORDER
     Dates: start: 20141120
  4. FORTUM [Concomitant]
     Active Substance: CEFTAZIDIME
  5. AMIKLIN [Concomitant]
     Active Substance: AMIKACIN SULFATE
     Indication: RESPIRATORY TRACT INFECTION
     Dates: start: 20141110, end: 20141112
  6. ESBRIET [Suspect]
     Active Substance: PIRFENIDONE
     Dosage: 2403 MG
     Route: 048
     Dates: start: 20131111
  7. ESBRIET [Suspect]
     Active Substance: PIRFENIDONE
     Route: 048
     Dates: end: 20141107
  8. CORTANCYL [Concomitant]
     Active Substance: PREDNISONE
     Indication: IDIOPATHIC PULMONARY FIBROSIS
     Dates: start: 20130925
  9. CYCLOPHOSPHAMIDE. [Concomitant]
     Active Substance: CYCLOPHOSPHAMIDE
     Indication: IDIOPATHIC PULMONARY FIBROSIS
     Dates: start: 20130925, end: 20130925
  10. TAVANIC [Concomitant]
     Active Substance: LEVOFLOXACIN
     Indication: BRONCHITIS
     Dates: start: 20130803, end: 20130807
  11. AUGMENTIN [Concomitant]
     Active Substance: AMOXICILLIN\CLAVULANATE POTASSIUM
     Indication: BRONCHITIS
     Dates: start: 20130726, end: 20130802
  12. INEXIUM [Concomitant]
     Active Substance: ESOMEPRAZOLE
     Indication: GASTROOESOPHAGEAL REFLUX DISEASE
     Dates: start: 20140402
  13. PLAVIX 75 [Concomitant]
     Indication: THROMBOSIS PROPHYLAXIS
  14. ESBRIET [Suspect]
     Active Substance: PIRFENIDONE
     Dosage: 1602 MG
     Route: 048
     Dates: start: 20131104
  15. SOLU-MEDROL [Concomitant]
     Active Substance: METHYLPREDNISOLONE SODIUM SUCCINATE
     Indication: IDIOPATHIC PULMONARY FIBROSIS
     Dates: start: 20130921, end: 20130923
  16. SOLUPRED [Concomitant]
     Active Substance: PREDNISOLONE
     Indication: BRONCHITIS
     Dates: start: 20130726, end: 20130728
  17. OXYGENE [Concomitant]
     Active Substance: OXYGEN
     Indication: IDIOPATHIC PULMONARY FIBROSIS
     Dates: start: 20130918
  18. CORTANCYL [Concomitant]
     Active Substance: PREDNISONE
     Indication: BRONCHITIS
     Dates: start: 20141006, end: 20141015
  19. SOLUPRED [Concomitant]
     Active Substance: PREDNISOLONE
     Dates: start: 20130803, end: 20130805
  20. JOSACINE [Concomitant]
     Active Substance: JOSAMYCIN
     Indication: PRODUCTIVE COUGH
     Dates: start: 20141013, end: 20141016
  21. LASILIX [Concomitant]
     Active Substance: FUROSEMIDE
     Indication: INFECTION
     Dates: start: 20141105
  22. SERETIDES 500 [Concomitant]
     Indication: ASTHMA
  23. TAVANIC [Concomitant]
     Active Substance: LEVOFLOXACIN
     Dates: start: 20130904, end: 20130907
  24. MEDROL [Concomitant]
     Active Substance: METHYLPREDNISOLONE
     Indication: BRONCHITIS
     Dates: start: 20130904, end: 20130907
  25. AUGMENTIN [Concomitant]
     Active Substance: AMOXICILLIN\CLAVULANATE POTASSIUM
     Dates: start: 20141006, end: 20141016
  26. ESBRIET [Suspect]
     Active Substance: PIRFENIDONE
     Dosage: 801 MG
     Route: 048
     Dates: start: 20131028
  27. TAHOR 40 [Concomitant]
     Indication: HYPERCHOLESTEROLAEMIA
  28. BACTRIM [Concomitant]
     Active Substance: SULFAMETHOXAZOLE\TRIMETHOPRIM
     Indication: ANTIFUNGAL PROPHYLAXIS
     Dates: start: 20130918
  29. N-ACETYLCYSTEINE [Concomitant]
     Active Substance: ACETYLCYSTEINE
     Indication: IDIOPATHIC PULMONARY FIBROSIS
     Dates: start: 20130929, end: 20131014
  30. ENDOXAN [Concomitant]
     Active Substance: CYCLOPHOSPHAMIDE
     Indication: INFECTION
     Dates: start: 20141107, end: 20141107
  31. ESBRIET [Suspect]
     Active Substance: PIRFENIDONE
     Indication: IDIOPATHIC PULMONARY FIBROSIS
     Dosage: 801 MG
     Route: 048
     Dates: start: 20130417, end: 20130918
  32. SOLU-MEDROL [Concomitant]
     Active Substance: METHYLPREDNISOLONE SODIUM SUCCINATE
     Indication: INFECTION
     Dates: start: 20141101, end: 20141103
  33. TIENAM [Concomitant]
     Active Substance: CILASTATIN SODIUM\IMIPENEM
     Indication: RESPIRATORY TRACT INFECTION
     Dates: start: 20141110, end: 20141116

REACTIONS (5)
  - Lung infection [Recovered/Resolved with Sequelae]
  - Gamma-glutamyltransferase increased [Recovered/Resolved]
  - Aspartate aminotransferase increased [Recovered/Resolved]
  - Rhinovirus infection [Recovered/Resolved with Sequelae]
  - Alanine aminotransferase increased [Recovered/Resolved]

NARRATIVE: CASE EVENT DATE: 20130422
